FAERS Safety Report 4388457-6 (Version None)
Quarter: 2004Q2

REPORT INFORMATION
  Report Type: 
  Country: None (occurrence: None)
  Receive Date: 20040624
  Receipt Date: 20040618
  Transmission Date: 20050107
  Serious: Yes (Other)
  Sender: FDA-Public Use
  Company Number: 2004218949CA

PATIENT
  Age: 27 Year
  Sex: Female
  Weight: 49 kg

DRUGS (1)
  1. DEPO-PROVERA [Suspect]
     Indication: CONTRACEPTION
     Dosage: 150MG/ 10 3 WEEKS (1ST INJ), INTRAMUSCULAR
     Route: 030
     Dates: start: 20040325, end: 20040325

REACTIONS (2)
  - CONDITION AGGRAVATED [None]
  - MIGRAINE [None]
